FAERS Safety Report 25040777 (Version 1)
Quarter: 2025Q1

REPORT INFORMATION
  Report Type: Spontaneous
  Country: FR (occurrence: FR)
  Receive Date: 20250305
  Receipt Date: 20250305
  Transmission Date: 20250408
  Serious: Yes (Hospitalization)
  Sender: ACCORD
  Company Number: None

PATIENT
  Age: 65 Year
  Sex: Female
  Weight: 106.8 kg

DRUGS (14)
  1. FUROSEMIDE [Interacting]
     Active Substance: FUROSEMIDE
     Indication: Essential hypertension
     Dates: start: 2022, end: 20230102
  2. LITHIUM CARBONATE [Interacting]
     Active Substance: LITHIUM CARBONATE
     Indication: Bipolar disorder
     Dosage: 400 MG, PROLONGED-RELEASE SCORED TABLET?0-0-2
     Dates: start: 2014, end: 20230105
  3. CLOMIPRAMINE HYDROCHLORIDE [Concomitant]
     Active Substance: CLOMIPRAMINE HYDROCHLORIDE
     Indication: Depression
     Dosage: 0-0-3
     Dates: start: 2014
  4. ALDACTONE [Concomitant]
     Active Substance: SPIRONOLACTONE
     Indication: Essential hypertension
     Dosage: 1-0-0
     Dates: start: 2022
  5. HYDROCHLOROTHIAZIDE\VALSARTAN [Concomitant]
     Active Substance: HYDROCHLOROTHIAZIDE\VALSARTAN
     Indication: Essential hypertension
     Dosage: 160 MG/25 MG?1-0-0
     Dates: start: 2014
  6. BISOPROLOL FUMARATE [Concomitant]
     Active Substance: BISOPROLOL FUMARATE
     Indication: Essential hypertension
     Dosage: 1-0-0
     Dates: start: 2022
  7. URAPIDIL [Concomitant]
     Active Substance: URAPIDIL
     Indication: Essential hypertension
     Dosage: 1-0-1
     Dates: start: 2014
  8. LERCANIDIPINE [Concomitant]
     Active Substance: LERCANIDIPINE
     Indication: Essential hypertension
     Dosage: 10 MG, SCORED FILM-COATED TABLET?1-0-0
     Dates: start: 2014
  9. KARDEGIC [Concomitant]
     Active Substance: ASPIRIN DL-LYSINE
     Indication: Cardiovascular event prophylaxis
     Dosage: 75 MG, POWDER FOR ORAL SOLUTION IN SACHET?0-1-0
     Dates: start: 2014
  10. VESICARE [Concomitant]
     Active Substance: SOLIFENACIN SUCCINATE
     Indication: Urinary incontinence
     Dosage: 5 MG?0-0-1
     Dates: start: 2017, end: 20230117
  11. LEVOTHYROXINE SODIUM [Concomitant]
     Active Substance: LEVOTHYROXINE SODIUM
     Indication: Hypothyroidism
     Dosage: 25 MICROGRAMS, SCORED TABLET?1-0-0
     Dates: start: 2022, end: 20230117
  12. FUROSEMIDE [Interacting]
     Active Substance: FUROSEMIDE
     Indication: Essential hypertension
     Dates: start: 20230103, end: 20230106
  13. LITHIUM CARBONATE [Interacting]
     Active Substance: LITHIUM CARBONATE
     Indication: Bipolar disorder
     Dosage: 400 MG, PROLONGED-RELEASE SCORED TABLET?0-0-2
     Dates: start: 20230106, end: 20230106
  14. LITHIUM CARBONATE [Interacting]
     Active Substance: LITHIUM CARBONATE
     Indication: Bipolar disorder
     Dosage: 400 MG, PROLONGED-RELEASE SCORED TABLET?0-0-2
     Dates: start: 20230107, end: 20230109

REACTIONS (4)
  - Antipsychotic drug level above therapeutic [Recovered/Resolved]
  - Potentiating drug interaction [Recovered/Resolved]
  - Depressed level of consciousness [Recovered/Resolved]
  - Tremor [Recovered/Resolved]

NARRATIVE: CASE EVENT DATE: 20230103
